FAERS Safety Report 12245696 (Version 2)
Quarter: 2016Q2

REPORT INFORMATION
  Report Type: Report from Study
  Country: US (occurrence: US)
  Receive Date: 20160407
  Receipt Date: 20160420
  Transmission Date: 20160815
  Serious: No
  Sender: FDA-Public Use
  Company Number: US-AMGEN-USASL2016042188

PATIENT
  Age: 56 Year
  Sex: Male
  Weight: 94.33 kg

DRUGS (1)
  1. ENBREL [Suspect]
     Active Substance: ETANERCEPT
     Indication: RHEUMATOID ARTHRITIS
     Dosage: 50 MG, QWK
     Route: 058
     Dates: start: 201602, end: 20160309

REACTIONS (9)
  - Fatigue [Unknown]
  - Rash [Unknown]
  - Urticaria [Unknown]
  - Headache [Unknown]
  - No therapeutic response [Unknown]
  - Tooth disorder [Unknown]
  - Ear pain [Unknown]
  - Sinus disorder [Unknown]
  - Ear congestion [Unknown]

NARRATIVE: CASE EVENT DATE: 2016
